FAERS Safety Report 24544754 (Version 2)
Quarter: 2024Q4

REPORT INFORMATION
  Report Type: Report from Study
  Country: CA (occurrence: CA)
  Receive Date: 20241024
  Receipt Date: 20241202
  Transmission Date: 20250115
  Serious: Yes (Hospitalization)
  Sender: NOVARTIS
  Company Number: CA-002147023-NVSC2024CA205790

PATIENT
  Age: 57 Year
  Sex: Female

DRUGS (2)
  1. LEQVIO [Suspect]
     Active Substance: INCLISIRAN SODIUM
     Indication: Arteriosclerosis
     Dosage: 284 MG, OTHER (BASELINE, 3 MONTHS AND EVERY 6 MONTHS THEREAFTER)
     Route: 058
     Dates: start: 20230921
  2. LEQVIO [Suspect]
     Active Substance: INCLISIRAN SODIUM
     Dosage: 284 MG, OTHER, BASELINE, 3 MONTHS AND EVERY 6 MONTHS THEREAFTER
     Route: 058
     Dates: start: 20241017, end: 20241020

REACTIONS (5)
  - Dyspnoea [Unknown]
  - Bronchitis [Unknown]
  - Sinusitis [Unknown]
  - Injection site rash [Unknown]
  - Feeling abnormal [Unknown]
